FAERS Safety Report 21106971 (Version 1)
Quarter: 2022Q3

REPORT INFORMATION
  Report Type: Spontaneous
  Country: US (occurrence: US)
  Receive Date: 20220720
  Receipt Date: 20220720
  Transmission Date: 20221027
  Serious: No
  Sender: FDA-Public Use
  Company Number: US-PERRIGO-21US012211

PATIENT
  Sex: Male

DRUGS (2)
  1. MINOXIDIL [Suspect]
     Active Substance: MINOXIDIL
     Indication: Product used for unknown indication
     Dosage: UNKNOWN, UNKNOWN
     Route: 061
     Dates: start: 202108, end: 202108
  2. MINOXIDIL [Suspect]
     Active Substance: MINOXIDIL
     Indication: Product used for unknown indication
     Dosage: UNKNOWN, UNKNOWN
     Route: 061
     Dates: start: 202108, end: 202108

REACTIONS (6)
  - Application site hypersensitivity [Unknown]
  - Alopecia [Unknown]
  - Application site vesicles [Unknown]
  - Application site pain [Unknown]
  - Hair texture abnormal [Unknown]
  - Application site erythema [Unknown]

NARRATIVE: CASE EVENT DATE: 20210801
